FAERS Safety Report 12328595 (Version 1)
Quarter: 2016Q2

REPORT INFORMATION
  Report Type: Spontaneous
  Country: US (occurrence: US)
  Receive Date: 20160503
  Receipt Date: 20160503
  Transmission Date: 20160815
  Serious: No
  Sender: FDA-Public Use
  Company Number: US-BEH-2015049476

PATIENT
  Sex: Female
  Weight: 17.9 kg

DRUGS (14)
  1. LIDOCAINE. [Concomitant]
     Active Substance: LIDOCAINE
  2. BUDESONIDE. [Concomitant]
     Active Substance: BUDESONIDE
  3. ZYRTEC [Concomitant]
     Active Substance: CETIRIZINE HYDROCHLORIDE
  4. DIPHENHYDRAMINE. [Concomitant]
     Active Substance: DIPHENHYDRAMINE
  5. EPIPEN [Concomitant]
     Active Substance: EPINEPHRINE
  6. FUROSEMIDE. [Concomitant]
     Active Substance: FUROSEMIDE
  7. FLONASE [Concomitant]
     Active Substance: FLUTICASONE PROPIONATE
  8. VIAGRA [Concomitant]
     Active Substance: SILDENAFIL CITRATE
  9. AMOXICILLIN. [Concomitant]
     Active Substance: AMOXICILLIN
  10. SPIRONOLACTONE. [Concomitant]
     Active Substance: SPIRONOLACTONE
  11. ASPIRIN. [Concomitant]
     Active Substance: ASPIRIN
  12. BACTRIM [Concomitant]
     Active Substance: SULFAMETHOXAZOLE\TRIMETHOPRIM
  13. HIZENTRA [Suspect]
     Active Substance: HUMAN IMMUNOGLOBULIN G
     Indication: HYPOGAMMAGLOBULINAEMIA
     Route: 058
  14. VITAMIN D3 [Concomitant]
     Active Substance: CHOLECALCIFEROL

REACTIONS (1)
  - Infusion site pruritus [Unknown]
